FAERS Safety Report 14272070 (Version 1)
Quarter: 2017Q4

REPORT INFORMATION
  Report Type: Spontaneous
  Country: FR (occurrence: FR)
  Receive Date: 20171211
  Receipt Date: 20171211
  Transmission Date: 20180321
  Serious: Yes (Hospitalization, Other)
  Sender: FDA-Public Use
  Company Number: FR-OTSUKA-2016_005064

PATIENT
  Age: 87 Year
  Sex: Male

DRUGS (20)
  1. ZOPICLONE [Suspect]
     Active Substance: ZOPICLONE
     Indication: SOMNAMBULISM
     Dosage: UNK
     Route: 048
     Dates: start: 20160120, end: 20160131
  2. OFLOXACINE [Suspect]
     Active Substance: OFLOXACIN
     Indication: PROSTATITIS
     Dosage: 200 MG, UNK
     Route: 048
     Dates: start: 20160120, end: 20160131
  3. SOLUPRED                           /00016201/ [Concomitant]
     Active Substance: PREDNISOLONE
     Indication: PRODUCT USED FOR UNKNOWN INDICATION
     Dosage: UNK
     Route: 065
  4. ABILIFY [Suspect]
     Active Substance: ARIPIPRAZOLE
     Indication: PRODUCT USED FOR UNKNOWN INDICATION
     Dosage: 10 MG, UNK
     Route: 048
     Dates: start: 20160120
  5. IMOVANE [Suspect]
     Active Substance: ZOPICLONE
     Indication: DISINHIBITION
  6. TIAPRIDAL                          /00435701/ [Suspect]
     Active Substance: TIAPRIDE HYDROCHLORIDE
     Indication: SOMNAMBULISM
     Dosage: UNK
     Route: 048
     Dates: start: 20160120
  7. OFLOXACIN. [Suspect]
     Active Substance: OFLOXACIN
     Indication: PROSTATITIS
     Dosage: 200 MG, UNK
     Route: 048
     Dates: start: 20160120, end: 20160131
  8. PRIMPERAN [Concomitant]
     Active Substance: METOCLOPRAMIDE HYDROCHLORIDE
     Indication: PRODUCT USED FOR UNKNOWN INDICATION
     Dosage: UNK
     Route: 065
  9. JOSIR [Concomitant]
     Active Substance: TAMSULOSIN
     Indication: PRODUCT USED FOR UNKNOWN INDICATION
     Dosage: UNK
     Route: 065
  10. LOXEN (NICARDIPINE HYDROCHLORIDE) [Concomitant]
     Active Substance: NICARDIPINE HYDROCHLORIDE
     Indication: PRODUCT USED FOR UNKNOWN INDICATION
     Dosage: UNK
     Route: 065
  11. KEPPRA [Concomitant]
     Active Substance: LEVETIRACETAM
     Indication: EPILEPSY
  12. LISINOPRIL. [Concomitant]
     Active Substance: LISINOPRIL
     Indication: PRODUCT USED FOR UNKNOWN INDICATION
     Dosage: UNK
     Route: 065
  13. TAMSULOSIN HYDROCHLORIDE. [Concomitant]
     Active Substance: TAMSULOSIN HYDROCHLORIDE
     Indication: PRODUCT USED FOR UNKNOWN INDICATION
     Dosage: UNK
     Route: 065
  14. TIAPRIDAL                          /00435701/ [Suspect]
     Active Substance: TIAPRIDE HYDROCHLORIDE
     Indication: DISINHIBITION
  15. IMOVANE [Suspect]
     Active Substance: ZOPICLONE
     Indication: SOMNAMBULISM
     Dosage: UNK
     Route: 048
     Dates: start: 20160120, end: 20160131
  16. ZOPICLONE [Suspect]
     Active Substance: ZOPICLONE
     Indication: DISINHIBITION
  17. PREDNISOLONE. [Concomitant]
     Active Substance: PREDNISOLONE
     Indication: PRODUCT USED FOR UNKNOWN INDICATION
     Dosage: UNK
     Route: 065
  18. ZESTRIL [Concomitant]
     Active Substance: LISINOPRIL
     Indication: PRODUCT USED FOR UNKNOWN INDICATION
     Dosage: UNK
     Route: 065
  19. KEPPRA [Concomitant]
     Active Substance: LEVETIRACETAM
     Indication: PRODUCT USED FOR UNKNOWN INDICATION
     Dosage: UNK
     Route: 065
  20. METOCLOPRAMIDE. [Concomitant]
     Active Substance: METOCLOPRAMIDE
     Indication: PRODUCT USED FOR UNKNOWN INDICATION
     Dosage: UNK
     Route: 065

REACTIONS (3)
  - Partial seizures [Recovered/Resolved]
  - Fall [Recovered/Resolved]
  - Dementia [Recovered/Resolved]

NARRATIVE: CASE EVENT DATE: 20160123
